FAERS Safety Report 6232969-7 (Version None)
Quarter: 2009Q2

REPORT INFORMATION
  Report Type: 
  Country: None (occurrence: None)
  Receive Date: 20090617
  Receipt Date: 20090609
  Transmission Date: 20091009
  Serious: Yes (Other)
  Sender: FDA-Public Use
  Company Number: B0577429A

PATIENT
  Age: 38 Year
  Sex: Female

DRUGS (3)
  1. ALLI [Suspect]
     Dosage: 60MG SEE DOSAGE TEXT
     Route: 065
     Dates: start: 20090526, end: 20090531
  2. ORAL CONTRACEPTIVE [Concomitant]
     Route: 048
  3. VITAMINS [Concomitant]

REACTIONS (9)
  - CARDIOVASCULAR DISORDER [None]
  - CARDIOVASCULAR INSUFFICIENCY [None]
  - CHEST DISCOMFORT [None]
  - DIZZINESS [None]
  - FEAR [None]
  - HEART RATE INCREASED [None]
  - ILL-DEFINED DISORDER [None]
  - PANIC REACTION [None]
  - TACHYCARDIA [None]
